FAERS Safety Report 24448575 (Version 1)
Quarter: 2024Q4

REPORT INFORMATION
  Report Type: Spontaneous
  Country: GB (occurrence: GB)
  Receive Date: 20241017
  Receipt Date: 20241017
  Transmission Date: 20250115
  Serious: Yes (Hospitalization, Other)
  Sender: ACCORD
  Company Number: None

PATIENT
  Age: 58 Year

DRUGS (11)
  1. CARBOPLATIN [Suspect]
     Active Substance: CARBOPLATIN
     Indication: Product used for unknown indication
  2. PACLITAXEL [Suspect]
     Active Substance: PACLITAXEL
     Indication: Product used for unknown indication
  3. BEVACIZUMAB [Suspect]
     Active Substance: BEVACIZUMAB
     Indication: Product used for unknown indication
  4. PREGABALIN [Concomitant]
     Active Substance: PREGABALIN
     Dosage: 75 MG CAPSULES ONE TWICE A DAY
  5. ANASTROZOLE [Concomitant]
     Active Substance: ANASTROZOLE
     Dosage: 1 MG TABLETS ONE TO BE TAKEN EACH DAY
  6. MORPHINE [Concomitant]
     Active Substance: MORPHINE
     Dosage: 10 MG/5 ML ORAL SOLUTION 12.5 ML ( 25 MG) EVERY THREE HOURS
  7. DOCUSATE [Concomitant]
     Active Substance: DOCUSATE
     Dosage: 100 MG CAPSULES ONE TO BE TAKEN TWICE A DAY
  8. LANSOPRAZOLE [Concomitant]
     Active Substance: LANSOPRAZOLE
     Dosage: 30 MG GASTRO RESISTANT CAPSULES ONE TO BE TAKEN AT NIGHT
  9. SENNA [Concomitant]
     Active Substance: SENNA LEAF\SENNOSIDES\SENNOSIDES A AND B
     Dosage: 7.5 MG TABLETS TWO TO BE TAKEN AT NIGHT
  10. MORPHINE [Concomitant]
     Active Substance: MORPHINE
     Dosage: 60 MG TABLETS ONE TO BE TAKEN EVERY 12 HOURS.
  11. MORPHINE [Concomitant]
     Active Substance: MORPHINE
     Dosage: 10 MG/5 ML ORAL SOLUTION 12.5 ML (25 MG) TO BE TAKEN EVERY 3 HOURS

REACTIONS (1)
  - Colitis [Unknown]
